FAERS Safety Report 15786502 (Version 2)
Quarter: 2019Q1

REPORT INFORMATION
  Report Type: Spontaneous
  Country: US (occurrence: US)
  Receive Date: 20190103
  Receipt Date: 20190108
  Transmission Date: 20190417
  Serious: Yes (Life-Threatening)
  Sender: FDA-Public Use
  Company Number: US-PFIZER INC-2018534599

PATIENT
  Age: 6 Decade
  Sex: Male

DRUGS (6)
  1. EPINEPHRINE. [Suspect]
     Active Substance: EPINEPHRINE
     Dosage: UNK
     Route: 040
  2. CALCIUM CHLORIDE. [Suspect]
     Active Substance: CALCIUM CHLORIDE
     Indication: HYPOTENSION
     Dosage: UNK
     Route: 040
  3. EPINEPHRINE. [Suspect]
     Active Substance: EPINEPHRINE
     Indication: HYPOTENSION
     Dosage: 1 MG, UNK
     Route: 042
  4. VASOPRESSIN. [Suspect]
     Active Substance: VASOPRESSIN
     Indication: HYPOTENSION
     Dosage: UNK (HIGH-DOSE INTRAVENOUS INFUSIONS)
     Route: 042
  5. NOREPINEPHRINE BITARTRATE. [Suspect]
     Active Substance: NOREPINEPHRINE BITARTRATE
     Indication: HYPOTENSION
     Dosage: UNK (HIGH-DOSE INTRAVENOUS INFUSIONS)
     Route: 042
  6. EPINEPHRINE. [Suspect]
     Active Substance: EPINEPHRINE
     Dosage: UNK (HIGH-DOSE INTRAVENOUS INFUSIONS)
     Route: 042

REACTIONS (1)
  - Drug ineffective [Recovered/Resolved]
